FAERS Safety Report 8050974-5 (Version None)
Quarter: 2012Q1

REPORT INFORMATION
  Report Type: 
  Country: None (occurrence: None)
  Receive Date: 20120117
  Receipt Date: 20120111
  Transmission Date: 20120608
  Serious: Yes (Other)
  Sender: FDA-Public Use
  Company Number: PHHY2011TR106984

PATIENT
  Age: 50 Year
  Sex: Male

DRUGS (4)
  1. PAROXETINE HYDROCHLORIDE [Concomitant]
     Indication: DEPRESSION
  2. BROMOCRIPTINE MESYLATE [Concomitant]
  3. LEVOTIRON [Concomitant]
  4. SANDOSTATIN LAR [Suspect]
     Indication: ACROMEGALY
     Dosage: 30 MG, UNK
     Route: 030

REACTIONS (1)
  - FEELING COLD [None]
